FAERS Safety Report 4429463-2 (Version None)
Quarter: 2004Q3

REPORT INFORMATION
  Report Type: 
  Country: None (occurrence: None)
  Receive Date: 20040816
  Receipt Date: 20040730
  Transmission Date: 20050211
  Serious: Yes (Disabling)
  Sender: FDA-Public Use
  Company Number: 04P-151-0268788-00

PATIENT
  Age: 35 Year
  Sex: Male
  Weight: 63 kg

DRUGS (5)
  1. KALETRA [Suspect]
     Indication: HIV INFECTION
     Dosage: PER ORAL
     Route: 048
  2. EFAVIRENZ (EFAVIRENZ) [Suspect]
     Indication: HIV INFECTION
     Dosage: 600 MG, 1 IN 1 D
  3. CYCLOSPORINE [Suspect]
     Indication: RENAL TRANSPLANT
     Dosage: 10 MG, 1 IN 1 D
  4. PREDNISONE [Suspect]
     Indication: RENAL TRANSPLANT
     Dosage: 20 MG, 1 IN  1 D
  5. MYCOPHENOLATE MOFETIL (MYCOPHENOLATE MOFETIL) [Suspect]
     Indication: RENAL TRANSPLANT
     Dosage: 1000 MG, 1 IN 1 D

REACTIONS (4)
  - DRUG INTERACTION [None]
  - HYPERCHOLESTEROLAEMIA [None]
  - NEPHRITIS [None]
  - RENAL TRANSPLANT [None]
